FAERS Safety Report 18892545 (Version 1)
Quarter: 2021Q1

REPORT INFORMATION
  Report Type: Spontaneous
  Country: US (occurrence: US)
  Receive Date: 20210215
  Receipt Date: 20210215
  Transmission Date: 20210420
  Serious: Yes (Other)
  Sender: FDA-Public Use
  Company Number: US-GLAXOSMITHKLINE-US2021GSK037216

PATIENT
  Sex: Male

DRUGS (8)
  1. ZANTAC [Suspect]
     Active Substance: RANITIDINE HYDROCHLORIDE
     Indication: HYPERCHLORHYDRIA
     Dosage: GM57 BOTH
     Route: 065
     Dates: start: 199501, end: 200901
  2. ZANTAC [Suspect]
     Active Substance: RANITIDINE HYDROCHLORIDE
     Dosage: 150 UNK, QD
     Route: 065
     Dates: start: 199501, end: 200901
  3. ZANTAC [Suspect]
     Active Substance: RANITIDINE HYDROCHLORIDE
     Indication: HYPERCHLORHYDRIA
     Dosage: GM57 BOTH
     Route: 065
     Dates: start: 199501, end: 200901
  4. RANITIDINE. [Suspect]
     Active Substance: RANITIDINE
     Dosage: 150 UNK, QD
     Route: 065
     Dates: start: 199501, end: 200901
  5. ZANTAC [Suspect]
     Active Substance: RANITIDINE HYDROCHLORIDE
     Dosage: 150 UNK, QD
     Route: 065
     Dates: start: 199501, end: 200901
  6. RANITIDINE. [Suspect]
     Active Substance: RANITIDINE
     Indication: HYPERCHLORHYDRIA
     Dosage: GM57 BOTH
     Route: 065
     Dates: start: 199501, end: 200901
  7. RANITIDINE. [Suspect]
     Active Substance: RANITIDINE
     Dosage: 150 UNK, QD
     Route: 065
     Dates: start: 199501, end: 200901
  8. RANITIDINE. [Suspect]
     Active Substance: RANITIDINE
     Indication: HYPERCHLORHYDRIA
     Dosage: GM57 BOTH
     Route: 065
     Dates: start: 199501, end: 200901

REACTIONS (1)
  - Renal cancer [Unknown]
